FAERS Safety Report 26184746 (Version 1)
Quarter: 2025Q4

REPORT INFORMATION
  Report Type: Report from Study
  Country: GB (occurrence: GB)
  Receive Date: 20251222
  Receipt Date: 20251222
  Transmission Date: 20260117
  Serious: Yes (Hospitalization)
  Sender: AMARIN PHARMA, INC.
  Company Number: GB-Amarin Pharma  Inc-2025AMR000756

PATIENT
  Age: 67 Year
  Sex: Male

DRUGS (2)
  1. ICOSAPENT ETHYL [Suspect]
     Active Substance: ICOSAPENT ETHYL
     Indication: Cardiovascular disorder
     Dates: start: 20250605, end: 20251027
  2. ICOSAPENT ETHYL [Suspect]
     Active Substance: ICOSAPENT ETHYL
     Dosage: UNKNOWN, RESTARTED
     Dates: start: 20251101

REACTIONS (2)
  - Urethral perforation [Not Recovered/Not Resolved]
  - Intentional self-injury [Not Recovered/Not Resolved]

NARRATIVE: CASE EVENT DATE: 20251020
